FAERS Safety Report 17472260 (Version 7)
Quarter: 2020Q4

REPORT INFORMATION
  Report Type: Other
  Country: CA (occurrence: CA)
  Receive Date: 20200228
  Receipt Date: 20201013
  Transmission Date: 20210113
  Serious: Yes (Other)
  Sender: FDA-Public Use
  Company Number: CA-ROCHE-1254918

PATIENT
  Age: 72 Year
  Sex: Female
  Weight: 90.7 kg

DRUGS (24)
  1. BENADRYL [Concomitant]
     Active Substance: DIPHENHYDRAMINE HYDROCHLORIDE
     Indication: PREMEDICATION
     Route: 048
     Dates: start: 20190821
  2. METHYLPREDNISOLONE. [Concomitant]
     Active Substance: METHYLPREDNISOLONE
     Indication: PREMEDICATION
     Route: 042
     Dates: start: 20120104
  3. AMLODIPINE [Concomitant]
     Active Substance: AMLODIPINE BESYLATE
     Indication: HYPERTENSION
     Route: 048
  4. PREMARIN [Concomitant]
     Active Substance: ESTROGENS, CONJUGATED
  5. PROBIOTICA [Concomitant]
     Active Substance: PROBIOTICS NOS
  6. BENADRYL [Concomitant]
     Active Substance: DIPHENHYDRAMINE HYDROCHLORIDE
     Route: 048
     Dates: start: 20120104
  7. VITAMIN B12 [Concomitant]
     Active Substance: CYANOCOBALAMIN
  8. FOSAMAX [Concomitant]
     Active Substance: ALENDRONATE SODIUM
  9. FOLIC ACID. [Concomitant]
     Active Substance: FOLIC ACID
     Route: 048
  10. GABAPENTIN. [Concomitant]
     Active Substance: GABAPENTIN
  11. AMITRIPTYLINE [Concomitant]
     Active Substance: AMITRIPTYLINE
  12. RITUXAN [Suspect]
     Active Substance: RITUXIMAB
     Route: 042
     Dates: start: 20180809
  13. SOLU-MEDROL [Concomitant]
     Active Substance: METHYLPREDNISOLONE SODIUM SUCCINATE
     Indication: PREMEDICATION
     Route: 042
     Dates: start: 20190821
  14. ACETAMINOPHEN. [Concomitant]
     Active Substance: ACETAMINOPHEN
     Indication: PREMEDICATION
     Route: 048
     Dates: start: 20120104, end: 20120119
  15. PREDNISONE. [Concomitant]
     Active Substance: PREDNISONE
     Dosage: 5 DAYS WORTH
     Route: 048
  16. HYDROCHLOROTHIAZIDE. [Concomitant]
     Active Substance: HYDROCHLOROTHIAZIDE
  17. CORTISONE [Concomitant]
     Active Substance: CORTISONE
  18. DIPHENHYDRAMINE HCL [Concomitant]
     Active Substance: DIPHENHYDRAMINE HYDROCHLORIDE
     Indication: PREMEDICATION
     Route: 048
     Dates: start: 20120104
  19. VITAMIN D3 [Concomitant]
     Active Substance: CHOLECALCIFEROL
  20. TECTA [Concomitant]
     Active Substance: PANTOPRAZOLE MAGNESIUM
     Route: 048
  21. NITROFURANTOIN. [Concomitant]
     Active Substance: NITROFURANTOIN
  22. RITUXAN [Suspect]
     Active Substance: RITUXIMAB
     Indication: RHEUMATOID ARTHRITIS
     Dosage: RECEIVED RITUXIMAB INFUSION ON 28/OCT/2014, 25/MAY/2016?MOST RECENT INFUSION RECEIVD ON 17/NOV/2016,
     Route: 042
     Dates: start: 20120104
  23. ACETAMINOPHEN. [Concomitant]
     Active Substance: ACETAMINOPHEN
     Route: 048
     Dates: start: 20120709
  24. METHOTREXATE. [Concomitant]
     Active Substance: METHOTREXATE

REACTIONS (39)
  - Infusion related reaction [Unknown]
  - Cough [Unknown]
  - Bladder spasm [Not Recovered/Not Resolved]
  - Blood pressure systolic increased [Unknown]
  - Blood pressure increased [Unknown]
  - Pyrexia [Unknown]
  - Headache [Recovered/Resolved]
  - Hypertension [Unknown]
  - Cystitis [Unknown]
  - Joint swelling [Unknown]
  - Musculoskeletal stiffness [Unknown]
  - Off label use [Unknown]
  - Product use issue [Unknown]
  - Abdominal discomfort [Recovered/Resolved]
  - Pain in extremity [Not Recovered/Not Resolved]
  - Respiratory rate increased [Unknown]
  - Heart rate decreased [Unknown]
  - Weight decreased [Unknown]
  - Productive cough [Recovering/Resolving]
  - Fatigue [Not Recovered/Not Resolved]
  - Urine abnormality [Not Recovered/Not Resolved]
  - Urinary tract infection [Not Recovered/Not Resolved]
  - Blood pressure fluctuation [Unknown]
  - Respiratory rate increased [Unknown]
  - Musculoskeletal discomfort [Unknown]
  - Wheezing [Not Recovered/Not Resolved]
  - Urinary sediment present [Not Recovered/Not Resolved]
  - Blood pressure fluctuation [Unknown]
  - Muscular weakness [Not Recovered/Not Resolved]
  - Insomnia [Not Recovered/Not Resolved]
  - Blood pressure abnormal [Unknown]
  - Dental restoration failure [Unknown]
  - Arthralgia [Unknown]
  - Rheumatoid arthritis [Unknown]
  - Pneumonia [Unknown]
  - Blood pressure diastolic decreased [Unknown]
  - Infection [Unknown]
  - Pollakiuria [Not Recovered/Not Resolved]
  - Tachycardia [Unknown]

NARRATIVE: CASE EVENT DATE: 201307
